FAERS Safety Report 5880546-X (Version None)
Quarter: 2008Q3

REPORT INFORMATION
  Report Type: 
  Country: None (occurrence: None)
  Receive Date: 20080912
  Receipt Date: 20080602
  Transmission Date: 20090109
  Serious: No
  Sender: FDA-Public Use
  Company Number: US-ABBOTT-08P-163-0454567-00

PATIENT
  Sex: Male
  Weight: 71.732 kg

DRUGS (4)
  1. HUMIRA [Suspect]
     Indication: RHEUMATOID ARTHRITIS
     Route: 058
     Dates: start: 20080301
  2. ATORVASTATIN CALCIUM [Concomitant]
     Indication: DRUG USE FOR UNKNOWN INDICATION
     Route: 048
  3. LISINOPRIL [Concomitant]
     Indication: DRUG USE FOR UNKNOWN INDICATION
     Route: 048
  4. OXYMETAZOLINE HCL [Concomitant]
     Indication: HYPERSENSITIVITY

REACTIONS (4)
  - BURNING SENSATION [None]
  - RASH [None]
  - RASH MACULAR [None]
  - RASH PRURITIC [None]
